FAERS Safety Report 9127048 (Version 1)
Quarter: 2013Q1

REPORT INFORMATION
  Report Type: Spontaneous
  Country: BR (occurrence: BR)
  Receive Date: 20130122
  Receipt Date: 20130122
  Transmission Date: 20140127
  Serious: Yes (Other)
  Sender: FDA-Public Use
  Company Number: PHHY2013BR005062

PATIENT
  Sex: Male

DRUGS (2)
  1. DIOVAN [Suspect]
  2. FORASEQ [Suspect]

REACTIONS (3)
  - Cerebrovascular accident [Unknown]
  - Renal disorder [Unknown]
  - Pneumonia [Unknown]
